FAERS Safety Report 5574472-3 (Version None)
Quarter: 2007Q4

REPORT INFORMATION
  Report Type: 
  Country: None (occurrence: None)
  Receive Date: 20071227
  Receipt Date: 20071224
  Transmission Date: 20080405
  Serious: Yes (Death)
  Sender: FDA-Public Use
  Company Number: JP-WYE-H01874407

PATIENT
  Sex: Male
  Weight: 58.5 kg

DRUGS (13)
  1. AMIODARONE HCL [Suspect]
     Indication: VENTRICULAR TACHYCARDIA
     Dosage: 10 ML PER MINUTE FOR 10 MINUTES
     Route: 042
     Dates: start: 20071025, end: 20071025
  2. AMIODARONE HCL [Suspect]
     Dosage: 33 ML PER HOUR FOR 6 HOURS
     Route: 042
     Dates: start: 20071025, end: 20071025
  3. AMIODARONE HCL [Suspect]
     Dosage: 17 ML PER HOUR FOR 11 MINUTES
     Route: 042
     Dates: start: 20071025, end: 20071025
  4. INOVAN [Concomitant]
     Indication: VENTRICULAR TACHYCARDIA
     Route: 042
     Dates: start: 20071017, end: 20071026
  5. ALDACTONE [Concomitant]
     Dosage: 25 MG (UNSPECIFIED)
     Route: 048
     Dates: start: 20070405, end: 20071107
  6. TAKEPRON [Concomitant]
     Dosage: 30 MG (UNSPECIFIED)
     Route: 048
     Dates: start: 20070405, end: 20071107
  7. HOKUNALIN [Concomitant]
     Dosage: 2 MG (UNSPECIFIED)
     Route: 065
     Dates: start: 20070405, end: 20071107
  8. AMINOLEBAN [Concomitant]
     Indication: HEPATIC FAILURE
     Dosage: 200 MG (UNSPECIFIED)
     Route: 048
     Dates: start: 20070405, end: 20071107
  9. PORTOLAC [Concomitant]
     Dosage: 54 G (UNSPECIFIED)
     Route: 048
     Dates: start: 20070405, end: 20071107
  10. BIO THREE [Concomitant]
     Dosage: 6 G (UNSPECIFIED)
     Route: 048
     Dates: start: 20070405, end: 20070707
  11. LASIX [Concomitant]
     Dosage: 80 MG (UNSPECIFIED)
     Route: 048
     Dates: start: 20070405, end: 20071107
  12. AMIODARONE HCL [Suspect]
     Route: 048
     Dates: start: 20071025, end: 20071025
  13. URSO 250 [Concomitant]
     Dosage: 1800 MG (UNSPECIFIED)
     Route: 048
     Dates: start: 20070405, end: 20071107

REACTIONS (2)
  - HEPATIC FAILURE [None]
  - MULTI-ORGAN FAILURE [None]
